FAERS Safety Report 16172174 (Version 2)
Quarter: 2019Q2

REPORT INFORMATION
  Report Type: Spontaneous
  Country: US (occurrence: US)
  Receive Date: 20190409
  Receipt Date: 20190430
  Transmission Date: 20190711
  Serious: No
  Sender: FDA-Public Use
  Company Number: US-HTU-2019US018267

PATIENT
  Age: 74 Year
  Sex: Female

DRUGS (3)
  1. VALCHLOR [Suspect]
     Active Substance: MECHLORETHAMINE
     Dosage: UNK, UNKNOWN
     Dates: start: 20190128
  2. VALCHLOR [Suspect]
     Active Substance: MECHLORETHAMINE
     Indication: LANGERHANS^ CELL HISTIOCYTOSIS
     Dosage: THIN FILM, QD
  3. VALCHLOR [Suspect]
     Active Substance: MECHLORETHAMINE
     Indication: CUTANEOUS T-CELL LYMPHOMA
     Dosage: UNK, ONCE DAILY
     Route: 061
     Dates: start: 20181227

REACTIONS (5)
  - Off label use [Unknown]
  - Pain of skin [Unknown]
  - Blister [Unknown]
  - Skin weeping [Not Recovered/Not Resolved]
  - Application site exfoliation [Unknown]

NARRATIVE: CASE EVENT DATE: 201901
